FAERS Safety Report 4898929-3 (Version None)
Quarter: 2006Q1

REPORT INFORMATION
  Report Type: 
  Country: None (occurrence: None)
  Receive Date: 20060127
  Receipt Date: 20060113
  Transmission Date: 20060701
  Serious: Yes (Other)
  Sender: FDA-Public Use
  Company Number: US013240

PATIENT
  Age: 7 Year
  Sex: Male
  Weight: 24.9478 kg

DRUGS (2)
  1. MODAFINIL [Suspect]
     Indication: ATTENTION DEFICIT/HYPERACTIVITY DISORDER
     Dosage: MG DAILY ORAL
     Route: 048
     Dates: start: 20040330, end: 20040415
  2. MODAFINIL [Suspect]
     Dosage: MG DAILY OAL
     Dates: start: 20040423, end: 20040423

REACTIONS (10)
  - ARTHROPOD BITE [None]
  - BLISTER [None]
  - COXSACKIE VIRAL INFECTION [None]
  - DYSURIA [None]
  - ERYTHEMA MULTIFORME [None]
  - PHARYNGITIS STREPTOCOCCAL [None]
  - RASH PRURITIC [None]
  - SCAB [None]
  - STEVENS-JOHNSON SYNDROME [None]
  - SWELLING FACE [None]
